FAERS Safety Report 15949628 (Version 2)
Quarter: 2019Q1

REPORT INFORMATION
  Report Type: Spontaneous
  Country: US (occurrence: US)
  Receive Date: 20190211
  Receipt Date: 20190313
  Transmission Date: 20190417
  Serious: Yes (Other)
  Sender: FDA-Public Use
  Company Number: US-ASTRAZENECA-2019SE10615

PATIENT
  Sex: Female

DRUGS (22)
  1. PRIMIDONE. [Concomitant]
     Active Substance: PRIMIDONE
  2. NEXIUM [Suspect]
     Active Substance: ESOMEPRAZOLE MAGNESIUM
     Route: 048
     Dates: start: 20170814
  3. FUROSEMIDE. [Concomitant]
     Active Substance: FUROSEMIDE
     Dates: start: 20170419
  4. ALBUTEROL. [Concomitant]
     Active Substance: ALBUTEROL
     Dates: start: 20180204
  5. CIPROFLOXACIN. [Concomitant]
     Active Substance: CIPROFLOXACIN
  6. RANITIDINE. [Concomitant]
     Active Substance: RANITIDINE
     Dates: start: 20170116
  7. DULOXETINE. [Concomitant]
     Active Substance: DULOXETINE
     Dates: start: 20140507
  8. NEXIUM [Suspect]
     Active Substance: ESOMEPRAZOLE MAGNESIUM
     Route: 048
  9. CARVEDILOL. [Concomitant]
     Active Substance: CARVEDILOL
  10. DICLOFENAC [Concomitant]
     Active Substance: DICLOFENAC
     Dates: start: 20170417
  11. RANITIDINE. [Concomitant]
     Active Substance: RANITIDINE
     Dates: start: 20170116
  12. RANEXA [Concomitant]
     Active Substance: RANOLAZINE
     Dates: start: 20161020
  13. DOXYCYCLINE. [Concomitant]
     Active Substance: DOXYCYCLINE
     Dates: start: 20161020
  14. JANUVIA [Concomitant]
     Active Substance: SITAGLIPTIN PHOSPHATE
  15. LISINOPRIL. [Concomitant]
     Active Substance: LISINOPRIL
     Dates: start: 20170412
  16. PRIMIDONE. [Concomitant]
     Active Substance: PRIMIDONE
     Dates: start: 20160322
  17. SYNTHROID [Concomitant]
     Active Substance: LEVOTHYROXINE SODIUM
  18. AMOXICILLIN. [Concomitant]
     Active Substance: AMOXICILLIN
     Dates: start: 20150830
  19. LYRICA [Concomitant]
     Active Substance: PREGABALIN
     Dates: start: 20150830
  20. LEVOTHYROXINE. [Concomitant]
     Active Substance: LEVOTHYROXINE
  21. NAPROXEN. [Concomitant]
     Active Substance: NAPROXEN
     Dates: start: 20180204
  22. ZANTAC [Concomitant]
     Active Substance: RANITIDINE HYDROCHLORIDE

REACTIONS (5)
  - Chronic kidney disease [Unknown]
  - Renal injury [Unknown]
  - Renal failure [Unknown]
  - Rebound acid hypersecretion [Unknown]
  - Acute kidney injury [Unknown]
